FAERS Safety Report 10301869 (Version 1)
Quarter: 2014Q3

REPORT INFORMATION
  Report Type: Spontaneous
  Country: US (occurrence: None)
  Receive Date: 20140709
  Receipt Date: 20140709
  Transmission Date: 20150326
  Serious: Yes (Disabling)
  Sender: FDA-Public Use
  Company Number: None

PATIENT
  Age: 51 Year
  Sex: Female
  Weight: 86.18 kg

DRUGS (1)
  1. DULOXETINE 60 MG AND 20 MG 60 MG AND 1/2 OF A 20 MG NDC: 57237-0019-30 [Suspect]
     Active Substance: DULOXETINE
     Indication: MAJOR DEPRESSION
     Dosage: 1 60 MG AND 1/2 OF A 20 MG  ONCE DAILY  TAKEN BY MOUTH
     Route: 048
     Dates: start: 20131223, end: 20140708

REACTIONS (7)
  - Pain [None]
  - Haemorrhage [None]
  - Pain in extremity [None]
  - Contusion [None]
  - Joint swelling [None]
  - Ecchymosis [None]
  - Movement disorder [None]

NARRATIVE: CASE EVENT DATE: 20140703
